FAERS Safety Report 15997370 (Version 2)
Quarter: 2019Q2

REPORT INFORMATION
  Report Type: Report from Study
  Country: AU (occurrence: AU)
  Receive Date: 20190222
  Receipt Date: 20190524
  Transmission Date: 20190711
  Serious: Yes (Other)
  Sender: FDA-Public Use
  Company Number: AU-JNJFOC-20180737775

PATIENT
  Sex: Female

DRUGS (5)
  1. IMBRUVICA [Suspect]
     Active Substance: IBRUTINIB
     Indication: MANTLE CELL LYMPHOMA
     Route: 048
     Dates: start: 2015
  2. ALLOPURINOL. [Concomitant]
     Active Substance: ALLOPURINOL
     Route: 048
  3. NOVOMIX [Concomitant]
     Active Substance: INSULIN ASPART
     Indication: DIABETES MELLITUS
     Dosage: 6 UNITS
     Route: 058
     Dates: start: 2009
  4. BACTRIM [Concomitant]
     Active Substance: SULFAMETHOXAZOLE\TRIMETHOPRIM
     Indication: PROPHYLAXIS
     Dosage: 1 TABLET MON/WED/FRI
     Route: 048
  5. NOVOMIX [Concomitant]
     Active Substance: INSULIN ASPART
     Indication: DIABETES MELLITUS
     Dosage: 16 UNITS NOCTE
     Route: 058
     Dates: start: 2009

REACTIONS (9)
  - Contusion [Unknown]
  - Erythema [Unknown]
  - Skin cancer [Unknown]
  - Post procedural haemorrhage [Unknown]
  - Onychalgia [Not Recovered/Not Resolved]
  - Onychoclasis [Not Recovered/Not Resolved]
  - Onychomadesis [Unknown]
  - Dry skin [Recovering/Resolving]
  - Fatigue [Not Recovered/Not Resolved]
